FAERS Safety Report 9626393 (Version 1)
Quarter: 2013Q4

REPORT INFORMATION
  Report Type: Spontaneous
  Country: US (occurrence: US)
  Receive Date: 20131016
  Receipt Date: 20131016
  Transmission Date: 20140711
  Serious: No
  Sender: FDA-Public Use
  Company Number: US-BAYER-2013-125239

PATIENT
  Age: 27 Year
  Sex: Female
  Weight: 52 kg

DRUGS (4)
  1. ALEVE CAPLET [Suspect]
     Indication: HEADACHE
     Dosage: 2 DF, QD
     Route: 048
     Dates: start: 201310, end: 201310
  2. ALEVE CAPLET [Suspect]
     Indication: TOOTHACHE
  3. ALEVE TABLET [Suspect]
     Indication: HEADACHE
     Dosage: 2 DF, QD
     Route: 048
     Dates: start: 201310, end: 20131015
  4. ALEVE TABLET [Suspect]
     Indication: TOOTHACHE

REACTIONS (1)
  - Drug ineffective [None]
